FAERS Safety Report 11405832 (Version 1)
Quarter: 2015Q3

REPORT INFORMATION
  Report Type: Spontaneous
  Country: US (occurrence: US)
  Receive Date: 20150821
  Receipt Date: 20150821
  Transmission Date: 20151125
  Serious: No
  Sender: FDA-Public Use
  Company Number: US-NOVOPROD-420922

PATIENT
  Age: 63 Year
  Sex: Female
  Weight: 86.17 kg

DRUGS (4)
  1. VICTOZA [Suspect]
     Active Substance: LIRAGLUTIDE
     Dosage: 1.2 MG DAILY
     Route: 058
     Dates: start: 2014, end: 2014
  2. VICTOZA [Suspect]
     Active Substance: LIRAGLUTIDE
     Indication: TYPE 2 DIABETES MELLITUS
     Dosage: 0.6 MG DAILY
     Route: 058
     Dates: start: 201402, end: 2014
  3. VICTOZA [Suspect]
     Active Substance: LIRAGLUTIDE
     Dosage: 1.8 MG DAILY
     Route: 058
     Dates: start: 2014, end: 201408
  4. METFORMIN [Concomitant]
     Active Substance: METFORMIN HYDROCHLORIDE
     Indication: TYPE 2 DIABETES MELLITUS
     Dosage: 2000 MG, QD

REACTIONS (6)
  - Thyroid neoplasm [Recovered/Resolved]
  - Condition aggravated [Recovered/Resolved]
  - Gastrooesophageal reflux disease [Recovered/Resolved]
  - Blood glucose decreased [Recovered/Resolved]
  - Nausea [Recovered/Resolved]
  - Vomiting [Recovered/Resolved]

NARRATIVE: CASE EVENT DATE: 201408
